FAERS Safety Report 7668987-1 (Version None)
Quarter: 2011Q3

REPORT INFORMATION
  Report Type: 
  Country: None (occurrence: None)
  Receive Date: 20110808
  Receipt Date: 20110802
  Transmission Date: 20111222
  Serious: Yes (Other)
  Sender: FDA-Public Use
  Company Number: NL-GLAXOSMITHKLINE-B0737663A

PATIENT
  Sex: Female
  Weight: 70 kg

DRUGS (2)
  1. MALARONE [Suspect]
     Indication: MALARIA PROPHYLAXIS
     Route: 048
     Dates: start: 20110225
  2. NEOCON [Concomitant]
     Route: 048
     Dates: start: 20090803

REACTIONS (1)
  - PSORIASIS [None]
